FAERS Safety Report 24627559 (Version 1)
Quarter: 2024Q4

REPORT INFORMATION
  Report Type: Spontaneous
  Country: IT (occurrence: IT)
  Receive Date: 20241116
  Receipt Date: 20241116
  Transmission Date: 20250114
  Serious: Yes (Hospitalization, Other)
  Sender: AUROBINDO
  Company Number: IT-MINISAL02-1009793

PATIENT
  Age: 28 Year
  Sex: Male
  Weight: 74 kg

DRUGS (4)
  1. OXALIPLATIN [Suspect]
     Active Substance: OXALIPLATIN
     Indication: Rectal adenocarcinoma
     Dosage: 100 MILLIGRAM (14 DAYS)
     Route: 042
     Dates: start: 202405, end: 20240909
  2. LEVOLEUCOVORIN CALCIUM [Concomitant]
     Active Substance: LEVOLEUCOVORIN CALCIUM
     Indication: Rectal adenocarcinoma
     Dosage: 300 MILLIGRAM (144 DAYS)
     Route: 042
     Dates: start: 202405
  3. PANITUMUMAB [Concomitant]
     Active Substance: PANITUMUMAB
     Indication: Rectal adenocarcinoma
     Dosage: 200 MILLIGRAM (14 DAYS)
     Route: 042
     Dates: start: 202405
  4. FLUOROURACIL [Concomitant]
     Active Substance: FLUOROURACIL
     Indication: Rectal adenocarcinoma
     Dosage: 2920 MILLIGRAM (14 DAYS)
     Route: 042
     Dates: start: 202405

REACTIONS (1)
  - Papilloedema [Recovered/Resolved]

NARRATIVE: CASE EVENT DATE: 20240501
